FAERS Safety Report 19692665 (Version 2)
Quarter: 2021Q4

REPORT INFORMATION
  Report Type: Spontaneous
  Country: US (occurrence: US)
  Receive Date: 20210812
  Receipt Date: 20211214
  Transmission Date: 20220303
  Serious: Yes (Other)
  Sender: FDA-Public Use
  Company Number: US-PFIZER INC-202101022721

PATIENT
  Age: 64 Year
  Sex: Female

DRUGS (1)
  1. LYRICA [Suspect]
     Active Substance: PREGABALIN
     Dosage: 400 MG, 2X/DAY (SIG: 2 BY MOUTH BID)
     Route: 048

REACTIONS (3)
  - Cerebrovascular accident [Unknown]
  - Loss of personal independence in daily activities [Unknown]
  - Prescribed overdose [Unknown]
